FAERS Safety Report 10269679 (Version 1)
Quarter: 2014Q2

REPORT INFORMATION
  Report Type: Spontaneous
  Country: CA (occurrence: None)
  Receive Date: 20140625
  Receipt Date: 20140625
  Transmission Date: 20141212
  Serious: Yes (Life-Threatening)
  Sender: FDA-Public Use
  Company Number: FK201402435

PATIENT
  Age: 51 Year
  Sex: Female

DRUGS (2)
  1. CHORIONIC GONADOTROPIN [Suspect]
     Indication: OBESITY
     Dosage: 150 OTHER, 1 IN 1 D, INTRAMUSCULAR?
     Route: 030
  2. TENECTEPLASE [Concomitant]

REACTIONS (4)
  - Coronary artery dissection [None]
  - Coronary artery occlusion [None]
  - Off label use [None]
  - Ejection fraction [None]
